FAERS Safety Report 16363296 (Version 1)
Quarter: 2019Q3

REPORT INFORMATION
  Report Type: Spontaneous
  Country: US (occurrence: US)
  Receive Date: 20190527
  Receipt Date: 20190527
  Transmission Date: 20191004
  Serious: Yes (Hospitalization, Other)
  Sender: FDA-Public Use
  Company Number: None

PATIENT
  Age: 34 Year
  Sex: Female
  Weight: 58.8 kg

DRUGS (7)
  1. DEKA ESSENTIAL VITAMIN [Concomitant]
  2. AZITHROMYCIN 500 MG TABLET [Concomitant]
  3. SYMDEKO [Suspect]
     Active Substance: IVACAFTOR\TEZACAFTOR
     Indication: CYSTIC FIBROSIS
     Route: 048
     Dates: start: 20180215, end: 20190524
  4. OMEPRAZOLE 20 MG CAPSULES [Concomitant]
     Active Substance: OMEPRAZOLE
  5. ALBUTEROL 90 MCG/INHALATION MDI [Concomitant]
  6. SODIUM CHLORIDE 3% INHALATION SOLUTION [Concomitant]
  7. CREON 24,000 UNIT CAPSULES [Concomitant]

REACTIONS (3)
  - Abdominal pain [None]
  - Pancreatic cyst [None]
  - Nausea [None]

NARRATIVE: CASE EVENT DATE: 20181201
